FAERS Safety Report 5259535-4 (Version None)
Quarter: 2007Q1

REPORT INFORMATION
  Report Type: 
  Country: None (occurrence: None)
  Receive Date: 20070306
  Receipt Date: 20070222
  Transmission Date: 20070707
  Serious: Yes (Other)
  Sender: FDA-Public Use
  Company Number: 2007-00444

PATIENT
  Age: 70 Year
  Sex: Female
  Weight: 65.9 kg

DRUGS (16)
  1. VELCADE [Suspect]
     Indication: MULTIPLE MYELOMA
     Dosage: SEE IMAGE
     Route: 048
     Dates: start: 20030101
  2. VELCADE [Suspect]
     Indication: MULTIPLE MYELOMA
     Dosage: SEE IMAGE
     Route: 048
     Dates: start: 20040301
  3. VELCADE [Suspect]
     Indication: MULTIPLE MYELOMA
     Dosage: SEE IMAGE
     Route: 048
     Dates: start: 20060401
  4. VELCADE [Suspect]
     Indication: MULTIPLE MYELOMA
     Dosage: SEE IMAGE
     Route: 048
     Dates: start: 20061001
  5. REVLIMID [Suspect]
     Indication: MULTIPLE MYELOMA
     Dosage: SEE IMAGE
     Route: 048
     Dates: start: 20060425, end: 20060717
  6. REVLIMID [Suspect]
     Indication: MULTIPLE MYELOMA
     Dosage: SEE IMAGE
     Route: 048
     Dates: start: 20060718, end: 20060731
  7. REVLIMID [Suspect]
     Indication: MULTIPLE MYELOMA
     Dosage: SEE IMAGE
     Route: 048
     Dates: start: 20061001
  8. DEXAMETHASONE TAB [Suspect]
     Indication: MULTIPLE MYELOMA
     Dosage: 20.00 MG, ORAL
     Route: 048
     Dates: start: 20060401
  9. ASPIRIN [Concomitant]
  10. POTASSIUM (POTASSIUM) [Concomitant]
  11. SALSALATE (SALSALATE) [Concomitant]
  12. MOBIC [Concomitant]
  13. TYLENOL [Concomitant]
  14. MYCOLOG (TRIAMCINOLONE ACETONIDE, GRAMICIDIN, NYSTATIN, NEOMYCIN SULFA [Concomitant]
  15. SODIUM FLUORIDE (SODIUM FLUORIDE) [Concomitant]
  16. CYMBALTA [Concomitant]

REACTIONS (18)
  - ANAEMIA [None]
  - ASTHENIA [None]
  - BACK PAIN [None]
  - BLOOD LACTATE DEHYDROGENASE INCREASED [None]
  - BURNING SENSATION [None]
  - DISEASE PROGRESSION [None]
  - DRY SKIN [None]
  - DYSPNOEA [None]
  - ECCHYMOSIS [None]
  - FATIGUE [None]
  - NEUROPATHY [None]
  - ORAL CANDIDIASIS [None]
  - PAIN [None]
  - PANCYTOPENIA [None]
  - PHARYNGOLARYNGEAL PAIN [None]
  - SKIN EXFOLIATION [None]
  - THROMBOCYTOPENIA [None]
  - TOOTHACHE [None]
